FAERS Safety Report 6089162-0 (Version None)
Quarter: 2009Q1

REPORT INFORMATION
  Report Type: 
  Country: None (occurrence: None)
  Receive Date: 20090224
  Receipt Date: 20090212
  Transmission Date: 20090719
  Serious: Yes (Other)
  Sender: FDA-Public Use
  Company Number: DE-PFIZER INC-2008084982

PATIENT

DRUGS (8)
  1. LYRICA [Suspect]
     Indication: DIABETIC NEUROPATHY
     Dosage: UNK
     Route: 048
     Dates: start: 20080806, end: 20081001
  2. NOVORAPID [Concomitant]
  3. ATACAND [Concomitant]
  4. ALLOPURINOL [Concomitant]
  5. LEVOTHYROXINE SODIUM [Concomitant]
  6. LERCANIDIPINE HYDROCHLORIDE [Concomitant]
  7. MILGAMMA [Concomitant]
  8. PRAVASTATIN [Concomitant]

REACTIONS (6)
  - BACK PAIN [None]
  - GAIT DISTURBANCE [None]
  - GENERAL PHYSICAL HEALTH DETERIORATION [None]
  - MOVEMENT DISORDER [None]
  - MUSCULAR WEAKNESS [None]
  - SOMNOLENCE [None]
